FAERS Safety Report 8343720-9 (Version None)
Quarter: 2012Q2

REPORT INFORMATION
  Report Type: 
  Country: None (occurrence: None)
  Receive Date: 20120508
  Receipt Date: 20120508
  Transmission Date: 20120825
  Serious: Yes (Other)
  Sender: FDA-Public Use
  Company Number: None

PATIENT
  Age: 28 Year
  Sex: Female
  Weight: 74.842 kg

DRUGS (2)
  1. DEXILANT [Suspect]
     Indication: GASTROOESOPHAGEAL REFLUX DISEASE
     Dosage: 60.0 MG
     Route: 048
     Dates: start: 20120228, end: 20120318
  2. DEXILANT [Suspect]
     Indication: DYSPEPSIA
     Dosage: 60.0 MG
     Route: 048
     Dates: start: 20120228, end: 20120318

REACTIONS (2)
  - URTICARIA [None]
  - ARTHRALGIA [None]
